FAERS Safety Report 26040355 (Version 1)
Quarter: 2025Q4

REPORT INFORMATION
  Report Type: Spontaneous
  Country: US (occurrence: US)
  Receive Date: 20251113
  Receipt Date: 20251113
  Transmission Date: 20260117
  Serious: Yes (Hospitalization, Other)
  Sender: AJANTA PHARMA USA INC
  Company Number: US-AJANTA-2025AJA00150

PATIENT
  Age: 65 Year
  Sex: Male

DRUGS (44)
  1. ARIPIPRAZOLE [Suspect]
     Active Substance: ARIPIPRAZOLE
     Indication: Psychotic disorder
  2. ARIPIPRAZOLE [Suspect]
     Active Substance: ARIPIPRAZOLE
  3. ARIPIPRAZOLE [Suspect]
     Active Substance: ARIPIPRAZOLE
  4. ARIPIPRAZOLE [Suspect]
     Active Substance: ARIPIPRAZOLE
  5. ARIPIPRAZOLE [Suspect]
     Active Substance: ARIPIPRAZOLE
  6. FUROSEMIDE [Concomitant]
     Active Substance: FUROSEMIDE
     Indication: Cardiac failure acute
  7. FUROSEMIDE [Concomitant]
     Active Substance: FUROSEMIDE
  8. FUROSEMIDE [Concomitant]
     Active Substance: FUROSEMIDE
  9. FUROSEMIDE [Concomitant]
     Active Substance: FUROSEMIDE
  10. FUROSEMIDE [Concomitant]
     Active Substance: FUROSEMIDE
  11. FUROSEMIDE [Concomitant]
     Active Substance: FUROSEMIDE
  12. FUROSEMIDE [Concomitant]
     Active Substance: FUROSEMIDE
  13. FUROSEMIDE [Concomitant]
     Active Substance: FUROSEMIDE
  14. FUROSEMIDE [Concomitant]
     Active Substance: FUROSEMIDE
  15. SPIRONOLACTONE [Concomitant]
     Active Substance: SPIRONOLACTONE
     Indication: Heart failure with reduced ejection fraction
  16. RISPERIDONE [Concomitant]
     Active Substance: RISPERIDONE
     Indication: Psychotic disorder
  17. RISPERIDONE [Concomitant]
     Active Substance: RISPERIDONE
  18. RISPERIDONE [Concomitant]
     Active Substance: RISPERIDONE
  19. RISPERIDONE [Concomitant]
     Active Substance: RISPERIDONE
  20. RISPERIDONE [Concomitant]
     Active Substance: RISPERIDONE
  21. RISPERIDONE [Concomitant]
     Active Substance: RISPERIDONE
  22. RISPERIDONE [Concomitant]
     Active Substance: RISPERIDONE
  23. RISPERIDONE [Concomitant]
     Active Substance: RISPERIDONE
  24. RISPERIDONE [Concomitant]
     Active Substance: RISPERIDONE
  25. RISPERIDONE [Concomitant]
     Active Substance: RISPERIDONE
  26. RISPERIDONE [Concomitant]
     Active Substance: RISPERIDONE
  27. LOXAPINE [Concomitant]
     Active Substance: LOXAPINE
  28. LOXAPINE [Concomitant]
     Active Substance: LOXAPINE
  29. LOXAPINE [Concomitant]
     Active Substance: LOXAPINE
  30. LOXAPINE [Concomitant]
     Active Substance: LOXAPINE
  31. LOXAPINE [Concomitant]
     Active Substance: LOXAPINE
  32. LOXAPINE [Concomitant]
     Active Substance: LOXAPINE
  33. LOXAPINE [Concomitant]
     Active Substance: LOXAPINE
  34. TRAZODONE [Concomitant]
     Active Substance: TRAZODONE HYDROCHLORIDE
  35. TRAZODONE [Concomitant]
     Active Substance: TRAZODONE HYDROCHLORIDE
  36. TRAZODONE [Concomitant]
     Active Substance: TRAZODONE HYDROCHLORIDE
  37. TRAZODONE [Concomitant]
     Active Substance: TRAZODONE HYDROCHLORIDE
  38. TRAZODONE [Concomitant]
     Active Substance: TRAZODONE HYDROCHLORIDE
  39. BUMETANIDE [Concomitant]
     Active Substance: BUMETANIDE
  40. BUMETANIDE [Concomitant]
     Active Substance: BUMETANIDE
  41. BUMETANIDE [Concomitant]
     Active Substance: BUMETANIDE
  42. BUMETANIDE [Concomitant]
     Active Substance: BUMETANIDE
  43. BUMETANIDE [Concomitant]
     Active Substance: BUMETANIDE
  44. BUMETANIDE [Concomitant]
     Active Substance: BUMETANIDE

REACTIONS (1)
  - Inappropriate antidiuretic hormone secretion [Recovered/Resolved]
